FAERS Safety Report 14195340 (Version 1)
Quarter: 2017Q4

REPORT INFORMATION
  Report Type: Report from Study
  Country: KE (occurrence: KE)
  Receive Date: 20171116
  Receipt Date: 20171116
  Transmission Date: 20180321
  Serious: Yes (Other)
  Sender: FDA-Public Use
  Company Number: KE-ROCHE-2023612

PATIENT
  Sex: Female

DRUGS (6)
  1. SULFAMETHOXAZOLE/TRIMETHOPRIM [Interacting]
     Active Substance: SULFAMETHOXAZOLE\TRIMETHOPRIM
     Indication: PRODUCT USED FOR UNKNOWN INDICATION
     Route: 065
  2. ZIDOVUDINE. [Interacting]
     Active Substance: ZIDOVUDINE
     Indication: PRODUCT USED FOR UNKNOWN INDICATION
     Route: 065
  3. OMEPRAZOLE. [Interacting]
     Active Substance: OMEPRAZOLE
     Indication: PROPHYLAXIS OF NAUSEA AND VOMITING
     Route: 065
  4. CEFTRIAXONE. [Interacting]
     Active Substance: CEFTRIAXONE
     Indication: PRODUCT USED FOR UNKNOWN INDICATION
     Route: 065
  5. DIAZEPAM. [Suspect]
     Active Substance: DIAZEPAM
     Indication: PRODUCT USED FOR UNKNOWN INDICATION
     Route: 065
  6. ENOXAPARIN [Interacting]
     Active Substance: ENOXAPARIN
     Indication: PRODUCT USED FOR UNKNOWN INDICATION
     Route: 065

REACTIONS (19)
  - Abdominal pain [Unknown]
  - Decreased appetite [Unknown]
  - Drug interaction [Unknown]
  - Constipation [Unknown]
  - Thrombocytopenia [Unknown]
  - Leukopenia [Unknown]
  - Diarrhoea [Unknown]
  - Haemoglobin decreased [Unknown]
  - Abdominal distension [Unknown]
  - Oesophageal irritation [Unknown]
  - Nausea [Unknown]
  - Dizziness [Unknown]
  - Haemorrhage [Unknown]
  - Fatigue [Unknown]
  - Neutropenia [Unknown]
  - Vomiting [Unknown]
  - Rash [Unknown]
  - Hypokalaemia [Unknown]
  - Tinnitus [Unknown]
